FAERS Safety Report 9478912 (Version 1)
Quarter: 2013Q3

REPORT INFORMATION
  Report Type: Spontaneous
  Country: US (occurrence: None)
  Receive Date: 20130823
  Receipt Date: 20130823
  Transmission Date: 20140515
  Serious: Yes (Other)
  Sender: FDA-Public Use
  Company Number: 2013080085

PATIENT
  Age: 77 Year
  Sex: Male
  Weight: 90.72 kg

DRUGS (6)
  1. MUSE [Suspect]
     Indication: ERECTILE DYSFUNCTION
     Dosage: AS REQUIRED
     Route: 066
     Dates: start: 2011
  2. DIGOXIN (DIGOXIN) [Concomitant]
  3. HYDROCHLOROTHIAZIDE (HYDROCHLOROTHIAZIDE) [Concomitant]
  4. LISINOPRIL (LISINOPRIL) [Concomitant]
  5. METOPROLOL (METOPROLOL) [Concomitant]
  6. WARFARIN (WARFARIN) [Concomitant]

REACTIONS (3)
  - Drug ineffective [None]
  - Parkinson^s disease [None]
  - Drug effect decreased [None]
